FAERS Safety Report 7913826-4 (Version None)
Quarter: 2011Q4

REPORT INFORMATION
  Report Type: 
  Country: None (occurrence: None)
  Receive Date: 20111115
  Receipt Date: 20111109
  Transmission Date: 20120403
  Serious: Yes (Death)
  Sender: FDA-Public Use
  Company Number: GB-TEVA-298365ISR

PATIENT
  Age: 92 Year
  Sex: Female
  Weight: 64 kg

DRUGS (4)
  1. CLOPIDOGREL [Interacting]
     Indication: CEREBROVASCULAR ACCIDENT PROPHYLAXIS
  2. PREDNISOLONE [Interacting]
     Dates: end: 20110516
  3. PREDNISOLONE [Suspect]
     Indication: TEMPORAL ARTERITIS
     Dates: start: 20110517
  4. CLOPIDOGREL [Interacting]
     Indication: ATRIAL FIBRILLATION
     Dates: start: 20110505, end: 20110604

REACTIONS (6)
  - DRUG INTERACTION [None]
  - DIZZINESS [None]
  - VOMITING [None]
  - DUODENAL ULCER HAEMORRHAGE [None]
  - RECTAL HAEMORRHAGE [None]
  - SYNCOPE [None]
